FAERS Safety Report 7475613-3 (Version None)
Quarter: 2011Q2

REPORT INFORMATION
  Report Type: 
  Country: None (occurrence: None)
  Receive Date: 20110512
  Receipt Date: 20110502
  Transmission Date: 20111010
  Serious: Yes (Hospitalization)
  Sender: FDA-Public Use
  Company Number: GB-PFIZER INC-2010159094

PATIENT
  Age: 67 Year
  Sex: Female

DRUGS (1)
  1. CELECOXIB [Suspect]
     Indication: OSTEOARTHRITIS
     Dosage: 100 MG, 2X/DAY
     Route: 048
     Dates: start: 20081007, end: 20100415

REACTIONS (2)
  - ATRIAL FLUTTER [None]
  - ATRIAL FIBRILLATION [None]
